FAERS Safety Report 9473631 (Version 2)
Quarter: 2013Q3

REPORT INFORMATION
  Report Type: Spontaneous
  Country: US (occurrence: US)
  Receive Date: 20130823
  Receipt Date: 20130823
  Transmission Date: 20140515
  Serious: Yes (Death)
  Sender: FDA-Public Use
  Company Number: US-BRISTOL-MYERS SQUIBB COMPANY-16765406

PATIENT
  Age: 36 Year
  Sex: Male

DRUGS (8)
  1. SPRYCEL [Suspect]
     Indication: PANCREATIC NEUROENDOCRINE TUMOUR METASTATIC
     Route: 048
  2. DILAUDID [Concomitant]
  3. LORAZEPAM [Concomitant]
  4. METOCLOPRAMIDE [Concomitant]
  5. ONDANSETRON [Concomitant]
  6. OXYCONTIN [Concomitant]
  7. PRILOSEC [Concomitant]
  8. ZOLOFT [Concomitant]

REACTIONS (2)
  - Malignant neoplasm progression [Fatal]
  - Off label use [Unknown]
